FAERS Safety Report 20308117 (Version 2)
Quarter: 2022Q1

REPORT INFORMATION
  Report Type: Report from Study
  Country: US (occurrence: US)
  Receive Date: 20220107
  Receipt Date: 20220131
  Transmission Date: 20220423
  Serious: Yes (Other)
  Sender: FDA-Public Use
  Company Number: US-ABBVIE-22K-163-4223747-00

PATIENT
  Age: 33 Year
  Sex: Female

DRUGS (1)
  1. IMBRUVICA [Suspect]
     Active Substance: IBRUTINIB
     Indication: Chronic graft versus host disease
     Route: 048
     Dates: start: 20211009

REACTIONS (2)
  - Amniotic membrane graft [Recovering/Resolving]
  - Swelling of eyelid [Unknown]

NARRATIVE: CASE EVENT DATE: 20211220
